FAERS Safety Report 8667270 (Version 2)
Quarter: 2013Q1

REPORT INFORMATION
  Report Type: Spontaneous
  Country: US (occurrence: US)
  Receive Date: 20120717
  Receipt Date: 20130116
  Transmission Date: 20140127
  Serious: Yes (Other)
  Sender: FDA-Public Use
  Company Number: US-ELI_LILLY_AND_COMPANY-US201202004167

PATIENT
  Sex: Male
  Weight: 30.2 kg

DRUGS (1)
  1. HUMATROPE [Suspect]
     Dosage: 1.0 MG, UNK
     Route: 058
     Dates: start: 20120115, end: 20120125

REACTIONS (4)
  - Myopathy [Recovered/Resolved]
  - Vertigo [Unknown]
  - Pyrexia [Unknown]
  - Dizziness [Unknown]
